FAERS Safety Report 8714639 (Version 2)
Quarter: 2012Q4

REPORT INFORMATION
  Report Type: 
  Country: DZ (occurrence: DZ)
  Receive Date: 20120809
  Receipt Date: 20120829
  Transmission Date: 20130627
  Serious: Yes (Death)
  Sender: FDA-Public Use
  Company Number: DZ-SANOFI-AVENTIS-2012SA055811

PATIENT
  Age: 41 Year
  Sex: Female

DRUGS (2)
  1. TAXOTERE [Suspect]
     Indication: DRUG USE FOR UNKNOWN INDICATION
     Route: 065
  2. TAXOTERE [Suspect]
     Indication: DRUG USE FOR UNKNOWN INDICATION
     Route: 065
     Dates: start: 20120401

REACTIONS (2)
  - Death [Fatal]
  - Dyspnoea exertional [Unknown]
